FAERS Safety Report 9116548 (Version 8)
Quarter: 2013Q2

REPORT INFORMATION
  Report Type: Spontaneous
  Country: JP (occurrence: JP)
  Receive Date: 20130225
  Receipt Date: 20130502
  Transmission Date: 20140414
  Serious: Yes (Death, Life-Threatening, Other)
  Sender: FDA-Public Use
  Company Number: JP-B.I. PHARMACEUTICALS,INC./RIDGEFIELD-2013-BI-04780YA

PATIENT
  Age: 95 Year
  Sex: Male

DRUGS (12)
  1. TAMSULOSINA [Suspect]
     Indication: BENIGN PROSTATIC HYPERPLASIA
     Dosage: 0.2 MG
     Route: 048
     Dates: end: 20130213
  2. MODACIN (CEFTAZIDIME) [Suspect]
     Indication: PNEUMONIA
     Dosage: 2 G
     Route: 042
     Dates: start: 20130121, end: 20130207
  3. VANCOMYCIN (VANCOMYCIN HYDROCHLORIDE) [Suspect]
     Indication: PNEUMONIA
     Dosage: 0.5 MG
     Route: 042
     Dates: start: 20130121, end: 20130202
  4. VANCOMYCIN (VANCOMYCIN HYDROCHLORIDE) [Suspect]
     Dosage: 0.5 MG
     Route: 042
     Dates: start: 20130203, end: 20130207
  5. ALDACTONE A (SPIRONOLACTONE) [Suspect]
     Indication: PLEURAL EFFUSION
     Dosage: 25 MG
     Route: 048
     Dates: start: 20130129, end: 20130212
  6. LASIX (FUROSEMIDE) [Suspect]
     Indication: PLEURAL EFFUSION
     Dosage: 20 MG
     Route: 048
     Dates: start: 20130129, end: 20130212
  7. FOLIAMIN (FOLIC ACID) [Suspect]
     Indication: ANAEMIA
     Dosage: 10 MG
     Route: 048
     Dates: start: 20130121, end: 20130213
  8. UNASYN S (AMPICILLIN SODIUM,SULBACTAM SODIUM) [Suspect]
     Indication: PNEUMONIA
     Dosage: 4.5 MG
     Route: 042
     Dates: start: 20130112, end: 20130121
  9. TAMIFLU (OSELTAMIVIR PHOSPHATE) [Suspect]
     Indication: ANTIVIRAL PROPHYLAXIS
     Dosage: 75 MG
     Route: 048
     Dates: start: 20130115, end: 20130124
  10. BFLUID (AMINO ACIDS NOS, ELECTROLYTES NOS, GLUCOSE, THIAMINE HYDROCHLO [Concomitant]
     Dates: start: 20130111, end: 20130121
  11. SOLITA-T3 (POTASSIUM CHLORIDE, SODIUM CHLORIDE, SODIUM LACTATE) [Concomitant]
     Dates: start: 20130122, end: 20130122
  12. DECADRON (DEXAMETHASONE) [Concomitant]
     Dates: start: 20130213, end: 20130217

REACTIONS (4)
  - Death [Fatal]
  - Chronic obstructive pulmonary disease [Fatal]
  - Renal disorder [Not Recovered/Not Resolved]
  - Lung neoplasm malignant [Not Recovered/Not Resolved]
